FAERS Safety Report 6612515-6 (Version None)
Quarter: 2010Q1

REPORT INFORMATION
  Report Type: 
  Country: None (occurrence: None)
  Receive Date: 20100303
  Receipt Date: 20100219
  Transmission Date: 20100710
  Serious: Yes (Other)
  Sender: FDA-Public Use
  Company Number: US-JNJFOC-20100209327

PATIENT
  Age: 56 Year
  Sex: Male
  Weight: 63.5 kg

DRUGS (6)
  1. EXTRA STRENGTH TYLENOL [Suspect]
     Indication: HEADACHE
     Dosage: 1000 MG, 3-4 TIMES DAILY, ORAL
     Route: 048
  2. EXTRA STRENGTH TYLENOL [Suspect]
     Indication: PAIN
     Dosage: 1000 MG, 3-4 TIMES DAILY, ORAL
     Route: 048
  3. EXTRA STRENGTH TYLENOL [Suspect]
     Indication: BACK DISORDER
     Dosage: 1000 MG, 3-4 TIMES DAILY, ORAL
     Route: 048
  4. ALL OTHER NON-THERAPEUTIC PRODUCTS [Suspect]
     Indication: DRUG USE FOR UNKNOWN INDICATION
  5. VICODIN [Concomitant]
  6. PENICILLIN [Concomitant]

REACTIONS (9)
  - CHEST X-RAY ABNORMAL [None]
  - DIARRHOEA [None]
  - DYSPNOEA [None]
  - HAEMOPTYSIS [None]
  - HYPOAESTHESIA [None]
  - INTENTIONAL DRUG MISUSE [None]
  - JOINT SWELLING [None]
  - PRODUCT QUALITY ISSUE [None]
  - VISUAL IMPAIRMENT [None]
